FAERS Safety Report 24538763 (Version 2)
Quarter: 2024Q4

REPORT INFORMATION
  Report Type: Spontaneous
  Country: US (occurrence: US)
  Receive Date: 20241023
  Receipt Date: 20241108
  Transmission Date: 20250115
  Serious: Yes (Other)
  Sender: BLUEPRINT MEDICINES
  Company Number: US-Blueprint Medicines Corporation-5073

PATIENT
  Age: 44 Year
  Sex: Male
  Weight: 82.554 kg

DRUGS (6)
  1. AYVAKIT [Suspect]
     Active Substance: AVAPRITINIB
     Indication: Gastrointestinal stromal tumour
     Route: 065
     Dates: start: 20230814
  2. AYVAKIT [Suspect]
     Active Substance: AVAPRITINIB
     Route: 065
     Dates: start: 20231016
  3. AYVAKIT [Suspect]
     Active Substance: AVAPRITINIB
     Route: 048
     Dates: start: 20240222, end: 20240830
  4. DEXILANT [Concomitant]
     Active Substance: DEXLANSOPRAZOLE
     Indication: Product used for unknown indication
     Route: 048
  5. LOSARTAN [Concomitant]
     Active Substance: LOSARTAN
     Indication: Product used for unknown indication
     Route: 048
  6. NEXIUM [Concomitant]
     Active Substance: ESOMEPRAZOLE MAGNESIUM
     Indication: Product used for unknown indication
     Route: 048

REACTIONS (11)
  - Nephrolithiasis [Recovered/Resolved]
  - Hydronephrosis [Unknown]
  - Headache [Recovered/Resolved]
  - Vision blurred [Unknown]
  - Blood pressure increased [Unknown]
  - Liver function test increased [Unknown]
  - Abdominal discomfort [Unknown]
  - Anaemia [Unknown]
  - Pigmentation disorder [Unknown]
  - Flatulence [Unknown]
  - Intervertebral disc calcification [Unknown]

NARRATIVE: CASE EVENT DATE: 20240923
